FAERS Safety Report 9263137 (Version 1)
Quarter: 2013Q2

REPORT INFORMATION
  Report Type: Spontaneous
  Country: US (occurrence: US)
  Receive Date: 20130430
  Receipt Date: 20130430
  Transmission Date: 20140414
  Serious: Yes (Other)
  Sender: FDA-Public Use
  Company Number: US-SANOFI-AVENTIS-2013SA043082

PATIENT
  Age: 70 Year
  Sex: Female

DRUGS (3)
  1. ZOLPIDEM TARTRATE [Suspect]
     Indication: INSOMNIA
  2. ZOLPIDEM [Suspect]
  3. ZYRTEC [Concomitant]
     Indication: HYPERSENSITIVITY

REACTIONS (12)
  - Dependence [Unknown]
  - Insomnia [Unknown]
  - Somnolence [Unknown]
  - Hyperthyroidism [Not Recovered/Not Resolved]
  - Temperature intolerance [Not Recovered/Not Resolved]
  - Psoriasis [Not Recovered/Not Resolved]
  - Pruritus [Not Recovered/Not Resolved]
  - Malaise [Not Recovered/Not Resolved]
  - Local swelling [Not Recovered/Not Resolved]
  - Inflammation [Not Recovered/Not Resolved]
  - Somnambulism [Not Recovered/Not Resolved]
  - Somnambulism [Not Recovered/Not Resolved]
